FAERS Safety Report 7101490-6 (Version None)
Quarter: 2010Q4

REPORT INFORMATION
  Report Type: 
  Country: None (occurrence: None)
  Receive Date: 20101108
  Receipt Date: 20101025
  Transmission Date: 20110411
  Serious: Yes (Hospitalization, Disabling)
  Sender: FDA-Public Use
  Company Number: GER/UKI/10/0016366

PATIENT
  Age: 63 Year
  Sex: Male
  Weight: 70 kg

DRUGS (5)
  1. OMEPRAZOLE [Suspect]
     Indication: DYSPEPSIA
     Dosage: 40 MG, 1 IN 1 D
  2. LACTULOSE [Concomitant]
  3. SPIRONOLACTONE [Concomitant]
  4. THIAMINE HCL [Concomitant]
  5. VITAMIN B COMPLEX (B-KOMPLEX) [Concomitant]

REACTIONS (2)
  - HYPONATRAEMIA [None]
  - HYPOTENSION [None]
